FAERS Safety Report 24235053 (Version 1)
Quarter: 2024Q3

REPORT INFORMATION
  Report Type: Spontaneous
  Country: US (occurrence: US)
  Receive Date: 20240821
  Receipt Date: 20240821
  Transmission Date: 20241017
  Serious: Yes (Other)
  Sender: PURDUE
  Company Number: US-PURDUE PHARMA-USA-2024-0311480

PATIENT

DRUGS (1)
  1. OXYCONTIN [Suspect]
     Active Substance: OXYCODONE HYDROCHLORIDE
     Indication: Pain management
     Dosage: UNK
     Route: 048
     Dates: start: 199906

REACTIONS (7)
  - Drug dependence [Unknown]
  - Emotional distress [Unknown]
  - Mental disorder [Not Recovered/Not Resolved]
  - Intentional product misuse [Unknown]
  - Injury [Unknown]
  - Impaired work ability [Unknown]
  - Pain [Unknown]
